FAERS Safety Report 12524529 (Version 1)
Quarter: 2016Q3

REPORT INFORMATION
  Report Type: Spontaneous
  Country: AT (occurrence: AT)
  Receive Date: 20160704
  Receipt Date: 20160704
  Transmission Date: 20161109
  Serious: Yes (Hospitalization, Other)
  Sender: FDA-Public Use
  Company Number: AT-ASTRAZENECA-2016SE13391

PATIENT
  Age: 29 Year
  Sex: Female

DRUGS (34)
  1. SEROQUEL XR [Suspect]
     Active Substance: QUETIAPINE FUMARATE
     Indication: PANIC DISORDER
     Route: 048
     Dates: start: 20140331, end: 20140408
  2. SEROQUEL XR [Suspect]
     Active Substance: QUETIAPINE FUMARATE
     Indication: PANIC DISORDER
     Route: 048
     Dates: start: 20140403, end: 20140405
  3. TYSABRI [Concomitant]
     Active Substance: NATALIZUMAB
     Route: 042
     Dates: start: 20140414
  4. ESOMEP [Concomitant]
     Active Substance: ESOMEPRAZOLE
     Route: 048
     Dates: start: 20140402, end: 20140425
  5. SEROQUEL XR [Suspect]
     Active Substance: QUETIAPINE FUMARATE
     Indication: MENTAL DISORDER
     Route: 048
     Dates: start: 20140328, end: 20140331
  6. SEROQUEL XR [Suspect]
     Active Substance: QUETIAPINE FUMARATE
     Indication: MENTAL DISORDER
     Route: 048
     Dates: start: 20140401, end: 20140402
  7. SEROQUEL XR [Suspect]
     Active Substance: QUETIAPINE FUMARATE
     Indication: MAJOR DEPRESSION
     Route: 048
     Dates: start: 20140403, end: 20140405
  8. DOMINAL FORTE [Suspect]
     Active Substance: PROTHIPENDYL HYDROCHLORIDE
     Indication: MENTAL DISORDER
     Route: 065
     Dates: start: 20140402, end: 20140403
  9. DUROTIV [Concomitant]
     Active Substance: ESOMEPRAZOLE
     Dates: start: 20140402, end: 20140425
  10. SEROQUEL XR [Suspect]
     Active Substance: QUETIAPINE FUMARATE
     Indication: MENTAL DISORDER
     Route: 048
     Dates: start: 20140317, end: 20140325
  11. TYSABRI [Concomitant]
     Active Substance: NATALIZUMAB
     Route: 042
     Dates: start: 20140311
  12. SEROQUEL XR [Suspect]
     Active Substance: QUETIAPINE FUMARATE
     Indication: PANIC DISORDER
     Route: 048
     Dates: start: 20140326, end: 20140327
  13. SEROQUEL XR [Suspect]
     Active Substance: QUETIAPINE FUMARATE
     Indication: MAJOR DEPRESSION
     Route: 048
     Dates: start: 20140326, end: 20140330
  14. SEROQUEL XR [Suspect]
     Active Substance: QUETIAPINE FUMARATE
     Indication: PANIC DISORDER
     Route: 048
     Dates: start: 20140328, end: 20140331
  15. SEROQUEL XR [Suspect]
     Active Substance: QUETIAPINE FUMARATE
     Indication: PANIC DISORDER
     Route: 048
     Dates: start: 20140401, end: 20140402
  16. DOMINAL FORTE [Suspect]
     Active Substance: PROTHIPENDYL HYDROCHLORIDE
     Indication: MENTAL DISORDER
     Route: 065
     Dates: start: 20140404, end: 20140406
  17. SEROQUEL XR [Suspect]
     Active Substance: QUETIAPINE FUMARATE
     Indication: MAJOR DEPRESSION
     Route: 048
     Dates: start: 20140328, end: 20140331
  18. SEROQUEL XR [Suspect]
     Active Substance: QUETIAPINE FUMARATE
     Indication: MAJOR DEPRESSION
     Route: 048
     Dates: start: 20140331, end: 20140408
  19. ADJUVIN [Suspect]
     Active Substance: SERTRALINE HYDROCHLORIDE
     Indication: MENTAL DISORDER
     Route: 065
     Dates: start: 20140311, end: 20140425
  20. SAROTEN RETARD [Suspect]
     Active Substance: AMITRIPTYLINE
     Indication: MENTAL DISORDER
     Route: 065
     Dates: start: 20140328, end: 20140330
  21. SAROTEN RETARD [Suspect]
     Active Substance: AMITRIPTYLINE
     Indication: MENTAL DISORDER
     Route: 065
     Dates: start: 20140402, end: 20140404
  22. SEROQUEL XR [Suspect]
     Active Substance: QUETIAPINE FUMARATE
     Indication: PANIC DISORDER
     Route: 048
     Dates: start: 20140326, end: 20140330
  23. SEROQUEL XR [Suspect]
     Active Substance: QUETIAPINE FUMARATE
     Indication: MAJOR DEPRESSION
     Route: 048
     Dates: start: 20140401, end: 20140402
  24. ADJUVIN [Suspect]
     Active Substance: SERTRALINE HYDROCHLORIDE
     Indication: MENTAL DISORDER
     Route: 065
     Dates: start: 20140308, end: 20140310
  25. SEROQUEL XR [Suspect]
     Active Substance: QUETIAPINE FUMARATE
     Indication: PANIC DISORDER
     Route: 048
     Dates: start: 20140317, end: 20140325
  26. SEROQUEL XR [Suspect]
     Active Substance: QUETIAPINE FUMARATE
     Indication: MAJOR DEPRESSION
     Route: 048
     Dates: start: 20140317, end: 20140325
  27. SEROQUEL XR [Suspect]
     Active Substance: QUETIAPINE FUMARATE
     Indication: MAJOR DEPRESSION
     Route: 048
     Dates: start: 20140326, end: 20140327
  28. SEROQUEL XR [Suspect]
     Active Substance: QUETIAPINE FUMARATE
     Indication: MENTAL DISORDER
     Route: 048
     Dates: start: 20140403, end: 20140405
  29. SAROTEN RETARD [Suspect]
     Active Substance: AMITRIPTYLINE
     Indication: MENTAL DISORDER
     Route: 065
     Dates: start: 20140331, end: 20140401
  30. DOMINAL FORTE [Suspect]
     Active Substance: PROTHIPENDYL HYDROCHLORIDE
     Indication: MENTAL DISORDER
     Route: 065
     Dates: start: 20140331, end: 20140331
  31. SEROQUEL XR [Suspect]
     Active Substance: QUETIAPINE FUMARATE
     Indication: MENTAL DISORDER
     Route: 048
     Dates: start: 20140326, end: 20140327
  32. SEROQUEL XR [Suspect]
     Active Substance: QUETIAPINE FUMARATE
     Indication: MENTAL DISORDER
     Route: 048
     Dates: start: 20140326, end: 20140330
  33. SEROQUEL XR [Suspect]
     Active Substance: QUETIAPINE FUMARATE
     Indication: MENTAL DISORDER
     Route: 048
     Dates: start: 20140331, end: 20140408
  34. DOMINAL FORTE [Suspect]
     Active Substance: PROTHIPENDYL HYDROCHLORIDE
     Indication: MENTAL DISORDER
     Route: 065
     Dates: start: 20140401, end: 20140401

REACTIONS (3)
  - Off label use [Unknown]
  - Product use issue [Unknown]
  - Seizure [Recovered/Resolved]

NARRATIVE: CASE EVENT DATE: 20140403
